FAERS Safety Report 5710788-5 (Version None)
Quarter: 2008Q2

REPORT INFORMATION
  Report Type: 
  Country: None (occurrence: None)
  Receive Date: 20080417
  Receipt Date: 20080417
  Transmission Date: 20081010
  Serious: Yes (Other)
  Sender: FDA-Public Use
  Company Number: None

PATIENT
  Sex: Female

DRUGS (2)
  1. GADOLINIUM [Suspect]
     Indication: MULTIPLE SCLEROSIS
     Dosage: 11CC X1 WITH MRI IV
     Route: 042
     Dates: start: 20080102
  2. GADOLINIUM [Suspect]
     Indication: NUCLEAR MAGNETIC RESONANCE IMAGING
     Dosage: 11CC X1 WITH MRI IV
     Route: 042
     Dates: start: 20080102

REACTIONS (4)
  - ASTHENIA [None]
  - CONDITION AGGRAVATED [None]
  - JOINT STIFFNESS [None]
  - MULTIPLE SCLEROSIS [None]
